FAERS Safety Report 4685204-5 (Version None)
Quarter: 2005Q2

REPORT INFORMATION
  Report Type: 
  Country: None (occurrence: None)
  Receive Date: 20050608
  Receipt Date: 20050531
  Transmission Date: 20051028
  Serious: Yes (Hospitalization)
  Sender: FDA-Public Use
  Company Number: HK-BOEHRINGER INGELHEIM PHARMACEUTICALS, INC.-2005-UK-00966UK

PATIENT
  Sex: Male

DRUGS (6)
  1. MICARDIS [Suspect]
     Indication: CEREBROVASCULAR ACCIDENT PROPHYLAXIS
     Dosage: 400MG/50MG
     Route: 048
     Dates: start: 20041203, end: 20050601
  2. AGGRENOX [Suspect]
     Indication: CEREBROVASCULAR ACCIDENT PROPHYLAXIS
     Route: 048
     Dates: start: 20041203, end: 20050601
  3. PLACEBO [Suspect]
     Indication: CEREBROVASCULAR ACCIDENT PROPHYLAXIS
     Route: 048
     Dates: start: 20041203, end: 20050601
  4. PERINDOPRIL [Concomitant]
     Indication: HYPERTENSION
     Route: 048
     Dates: start: 20041202, end: 20050601
  5. ROSUVASTATIN [Concomitant]
     Indication: HYPERLIPIDAEMIA
     Route: 048
     Dates: start: 20041130, end: 20050601
  6. DIMENHYDRINATE [Concomitant]
     Indication: GASTRITIS
     Route: 030
     Dates: start: 20050528, end: 20050528

REACTIONS (2)
  - HAEMODIALYSIS [None]
  - RENAL FAILURE ACUTE [None]
